FAERS Safety Report 9636617 (Version 1)
Quarter: 2013Q4

REPORT INFORMATION
  Report Type: Report from Study
  Country: PE (occurrence: PE)
  Receive Date: 20131021
  Receipt Date: 20131021
  Transmission Date: 20140711
  Serious: Yes (Other)
  Sender: FDA-Public Use
  Company Number: PE-WATSON-2013-18611

PATIENT
  Age: 44 Year
  Sex: Female

DRUGS (2)
  1. TRELSTAR (WATSON LABORATORIES) [Suspect]
     Indication: BREAST CANCER
     Dosage: 3.75 MG, ONCE A MONTH
     Route: 030
     Dates: start: 20060928, end: 20080520
  2. TAMOXIFEN [Suspect]
     Indication: BREAST CANCER
     Dosage: 20 MG/KG, DAILY
     Route: 048
     Dates: start: 20070105, end: 20080713

REACTIONS (1)
  - Fracture [Recovered/Resolved]
